FAERS Safety Report 9946178 (Version 1)
Quarter: 2014Q1

REPORT INFORMATION
  Report Type: Spontaneous
  Country: US (occurrence: US)
  Receive Date: 20140303
  Receipt Date: 20140303
  Transmission Date: 20141002
  Serious: No
  Sender: FDA-Public Use
  Company Number: US-AMGEN-USASP2013078194

PATIENT
  Age: 50 Year
  Sex: Female

DRUGS (10)
  1. ENBREL [Suspect]
     Indication: PRODUCT USED FOR UNKNOWN INDICATION
     Dosage: 50 MG, QWK
     Route: 058
  2. LUPRON [Concomitant]
     Dosage: 2 WEEK
  3. NORETHINDRONE                      /00044901/ [Concomitant]
     Dosage: 0.35 MG, UNK
  4. MOBIC [Concomitant]
     Dosage: 7.5 MG, UNK
  5. TRAMADOL                           /00599202/ [Concomitant]
     Dosage: 50 MG, UNK
  6. CELEXA                             /00582602/ [Concomitant]
     Dosage: 20 MG, UNK
  7. VITAMIN B 12 [Concomitant]
     Dosage: 1000 NG, UNK
     Route: 058
  8. IRON [Concomitant]
     Dosage: UNK
  9. NORVASC [Concomitant]
     Dosage: 5 MG, UNK
  10. COZAAR [Concomitant]
     Dosage: 25 MG, UNK

REACTIONS (2)
  - Erythema [Unknown]
  - Arthropod bite [Unknown]
